FAERS Safety Report 4510264-1 (Version None)
Quarter: 2004Q4

REPORT INFORMATION
  Report Type: 
  Country: None (occurrence: None)
  Receive Date: 20041124
  Receipt Date: 20030407
  Transmission Date: 20050328
  Serious: Yes (Death, Hospitalization, Other)
  Sender: FDA-Public Use
  Company Number: US-MERCK-0304USA00825

PATIENT
  Age: 89 Year
  Sex: Female
  Weight: 52 kg

DRUGS (7)
  1. VIOXX [Suspect]
     Indication: OSTEOARTHRITIS
     Route: 048
     Dates: start: 20010601
  2. VIOXX [Suspect]
     Indication: PAIN
     Route: 048
     Dates: start: 20010601
  3. FOSAMAX [Concomitant]
     Route: 065
  4. PERCOCET [Concomitant]
     Route: 065
  5. ZESTRIL [Concomitant]
     Route: 065
     Dates: start: 20010706
  6. ZESTRIL [Concomitant]
     Route: 065
     Dates: end: 20010705
  7. DILTIAZEM HYDROCHLORIDE [Concomitant]
     Route: 065

REACTIONS (33)
  - ANXIETY [None]
  - AORTIC ANEURYSM [None]
  - ARTHRALGIA [None]
  - ASTHENIA [None]
  - ASTHMA [None]
  - ATHEROSCLEROSIS [None]
  - ATRIAL FIBRILLATION [None]
  - BRADYCARDIA [None]
  - BRONCHITIS [None]
  - BRONCHOSPASM [None]
  - CARDIAC MURMUR [None]
  - CARDIOMEGALY [None]
  - CHRONIC OBSTRUCTIVE AIRWAYS DISEASE [None]
  - COMPRESSION FRACTURE [None]
  - DEATH [None]
  - DIFFICULTY IN WALKING [None]
  - DISORIENTATION [None]
  - HYPOAESTHESIA [None]
  - HYPOTENSION [None]
  - INTERSTITIAL LUNG DISEASE [None]
  - LABILE HYPERTENSION [None]
  - MITRAL VALVE INCOMPETENCE [None]
  - MYOCARDIAL INFARCTION [None]
  - NEUROPATHY [None]
  - OVERDOSE [None]
  - PAIN IN EXTREMITY [None]
  - RENAL ARTERY STENOSIS [None]
  - SPINAL COLUMN STENOSIS [None]
  - SPINAL COMPRESSION FRACTURE [None]
  - TRACHEAL OBSTRUCTION [None]
  - TRICUSPID VALVE INCOMPETENCE [None]
  - VASCULAR CALCIFICATION [None]
  - VENTRICULAR HYPERTROPHY [None]
